FAERS Safety Report 10229619 (Version 2)
Quarter: 2014Q4

REPORT INFORMATION
  Report Type: Spontaneous
  Country: US (occurrence: None)
  Receive Date: 20140609
  Receipt Date: 20141203
  Transmission Date: 20150528
  Serious: Yes (Hospitalization)
  Sender: FDA-Public Use
  Company Number: 1713747-2014-99984

PATIENT
  Sex: Male
  Weight: 69 kg

DRUGS (4)
  1. LIBERTY CYCLER CASSETTE [Concomitant]
     Active Substance: DEVICE
  2. DELFLEX [Suspect]
     Active Substance: CALCIUM CHLORIDE\DEXTROSE MONOHYDRATE\MAGNESIUM CHLORIDE\SODIUM CHLORIDE\SODIUM LACTATE
     Indication: PERITONEAL DIALYSIS
     Route: 033
     Dates: start: 20140507
  3. DELFLEX [Suspect]
     Active Substance: CALCIUM CHLORIDE\DEXTROSE MONOHYDRATE\MAGNESIUM CHLORIDE\SODIUM CHLORIDE\SODIUM LACTATE
     Indication: CHRONIC KIDNEY DISEASE
     Route: 033
     Dates: start: 20140507
  4. LIBERTY CYCLER [Concomitant]
     Active Substance: DEVICE

REACTIONS (3)
  - Hyponatraemia [None]
  - Abnormal behaviour [None]
  - Dementia [None]

NARRATIVE: CASE EVENT DATE: 20140507
